FAERS Safety Report 9580712 (Version 2)
Quarter: 2013Q4

REPORT INFORMATION
  Report Type: Report from Study
  Country: CL (occurrence: CL)
  Receive Date: 20131002
  Receipt Date: 20131002
  Transmission Date: 20140711
  Serious: Yes (Other)
  Sender: FDA-Public Use
  Company Number: CL-ROCHE-1239662

PATIENT
  Age: 47 Year
  Sex: Female
  Weight: 82 kg

DRUGS (3)
  1. XELODA [Suspect]
     Indication: BREAST CANCER
     Route: 048
     Dates: start: 20130411, end: 20130911
  2. ANASTROZOL [Suspect]
     Indication: BREAST CANCER
     Route: 048
  3. PAMIDRONATE [Concomitant]
     Route: 042

REACTIONS (8)
  - Erythema [Recovered/Resolved]
  - Pain in extremity [Recovered/Resolved]
  - Skin exfoliation [Not Recovered/Not Resolved]
  - Local swelling [Recovered/Resolved]
  - Nausea [Not Recovered/Not Resolved]
  - Pain in extremity [Not Recovered/Not Resolved]
  - Blood pressure decreased [Recovered/Resolved]
  - Muscular weakness [Unknown]
